FAERS Safety Report 13584228 (Version 1)
Quarter: 2017Q2

REPORT INFORMATION
  Report Type: Spontaneous
  Country: US (occurrence: US)
  Receive Date: 20170525
  Receipt Date: 20170525
  Transmission Date: 20170830
  Serious: No
  Sender: FDA-Public Use
  Company Number: None

PATIENT
  Age: 56 Year
  Sex: Male
  Weight: 126 kg

DRUGS (2)
  1. ARMODAFINIL. [Suspect]
     Active Substance: ARMODAFINIL
     Indication: SLEEP APNOEA SYNDROME
     Dosage: ?          QUANTITY:30 TABLET(S);?
     Route: 048
  2. C-PAP [Concomitant]

REACTIONS (4)
  - Product substitution issue [None]
  - Somnolence [None]
  - Initial insomnia [None]
  - Drug ineffective [None]

NARRATIVE: CASE EVENT DATE: 20170524
